FAERS Safety Report 21444368 (Version 2)
Quarter: 2024Q2

REPORT INFORMATION
  Report Type: Report from Study
  Country: US (occurrence: US)
  Receive Date: 20221012
  Receipt Date: 20240409
  Transmission Date: 20240716
  Serious: No
  Sender: FDA-Public Use
  Company Number: US-ABBVIE-4149438

PATIENT
  Sex: Female

DRUGS (2)
  1. SKYRIZI [Suspect]
     Active Substance: RISANKIZUMAB-RZAA
     Indication: Psoriasis
     Dosage: WEEK 0 DOSE
     Route: 058
     Dates: start: 20220714, end: 20220714
  2. SKYRIZI [Suspect]
     Active Substance: RISANKIZUMAB-RZAA
     Dosage: WEEK 4 DOSE
     Route: 058
     Dates: start: 20220810, end: 20220810

REACTIONS (1)
  - Pain [Unknown]

NARRATIVE: CASE EVENT DATE: 20220101
